FAERS Safety Report 24603206 (Version 1)
Quarter: 2024Q4

REPORT INFORMATION
  Report Type: Spontaneous
  Country: DE (occurrence: DE)
  Receive Date: 20241111
  Receipt Date: 20241111
  Transmission Date: 20250115
  Serious: Yes (Other)
  Sender: MYLAN
  Company Number: None

PATIENT
  Age: 50 Year
  Sex: Male
  Weight: 91 kg

DRUGS (5)
  1. CITALOPRAM [Suspect]
     Active Substance: CITALOPRAM
     Indication: Panic attack
     Dosage: 20 MILLIGRAM, QD
     Route: 048
     Dates: start: 2009, end: 2014
  2. CITALOPRAM [Suspect]
     Active Substance: CITALOPRAM
     Indication: Depression
  3. ESCITALOPRAM [Suspect]
     Active Substance: ESCITALOPRAM OXALATE
     Indication: Product used for unknown indication
     Dosage: 10 MILLIGRAM, QD
     Route: 048
     Dates: start: 2014, end: 2022
  4. ESCITALOPRAM [Suspect]
     Active Substance: ESCITALOPRAM OXALATE
     Dosage: 5 MILLIGRAM, QD
     Route: 048
     Dates: start: 2022, end: 2023
  5. ESCITALOPRAM [Suspect]
     Active Substance: ESCITALOPRAM OXALATE
     Dosage: 2.5 MILLIGRAM, QD
     Route: 048
     Dates: start: 202306, end: 2024

REACTIONS (4)
  - Gastric neuroendocrine carcinoma [Recovered/Resolved]
  - Chronic gastritis [Recovered/Resolved]
  - Pernicious anaemia [Recovered/Resolved]
  - Vitamin B12 deficiency [Recovered/Resolved]

NARRATIVE: CASE EVENT DATE: 20130201
